FAERS Safety Report 21687790 (Version 1)
Quarter: 2022Q4

REPORT INFORMATION
  Report Type: Spontaneous
  Country: US (occurrence: US)
  Receive Date: 20221206
  Receipt Date: 20221206
  Transmission Date: 20230113
  Serious: Yes (Hospitalization)
  Sender: FDA-Public Use
  Company Number: US-SAMSUNG BIOEPIS-SB-2022-30807

PATIENT
  Age: 73 Year
  Sex: Female

DRUGS (8)
  1. INFLIXIMAB [Suspect]
     Active Substance: INFLIXIMAB
     Indication: Haemophagocytic lymphohistiocytosis
     Dosage: UNKNOWN
     Route: 065
  2. INFLIXIMAB [Suspect]
     Active Substance: INFLIXIMAB
     Indication: Thrombotic microangiopathy
  3. INFLIXIMAB [Suspect]
     Active Substance: INFLIXIMAB
     Indication: Sarcoidosis
  4. INFLIXIMAB [Suspect]
     Active Substance: INFLIXIMAB
     Indication: Antiphospholipid antibodies
  5. PREDNISONE [Concomitant]
     Active Substance: PREDNISONE
     Indication: Haemophagocytic lymphohistiocytosis
     Dosage: DOSE: UNKNOWN, REDUCTION IN DOSE
     Route: 065
  6. PREDNISONE [Concomitant]
     Active Substance: PREDNISONE
     Indication: Thrombotic microangiopathy
  7. PREDNISONE [Concomitant]
     Active Substance: PREDNISONE
     Indication: Sarcoidosis
  8. PREDNISONE [Concomitant]
     Active Substance: PREDNISONE
     Indication: Antiphospholipid antibodies

REACTIONS (2)
  - Blood creatinine increased [Unknown]
  - Off label use [Unknown]
